FAERS Safety Report 21680696 (Version 1)
Quarter: 2022Q4

REPORT INFORMATION
  Report Type: Spontaneous
  Country: US (occurrence: US)
  Receive Date: 20221205
  Receipt Date: 20221205
  Transmission Date: 20230113
  Serious: Yes (Hospitalization, Other)
  Sender: FDA-Public Use
  Company Number: US-CIPLA LTD.-2022US06980

PATIENT
  Age: 31 Year
  Sex: Male

DRUGS (6)
  1. ANASTROZOLE [Suspect]
     Active Substance: ANASTROZOLE
     Indication: Muscle building therapy
     Dosage: 1 MILLIGRAM, DAILY
     Route: 048
  2. DANAZOL [Suspect]
     Active Substance: DANAZOL
     Indication: Muscle building therapy
     Dosage: 100 MILLIGRAM, DAILY
     Route: 048
  3. PRASTERONE [Suspect]
     Active Substance: PRASTERONE
     Indication: Muscle building therapy
     Dosage: 100 MILLIGRAM, DAILY
     Route: 048
  4. CLOMIPHENE CITRATE [Suspect]
     Active Substance: CLOMIPHENE CITRATE
     Indication: Muscle building therapy
     Dosage: 50 MILLIGRAM, DAILY
     Route: 048
  5. HUMAN CHORIONIC GONADOTROPIN [Suspect]
     Active Substance: GONADOTROPHIN, CHORIONIC
     Indication: Muscle building therapy
     Dosage: 10000 INTERNATIONAL UNIT BI WEEKLY
     Route: 030
  6. VITAMIN D3 [Suspect]
     Active Substance: CHOLECALCIFEROL
     Indication: Muscle building therapy
     Dosage: 100,000 UNITS/ML WEEKLY
     Route: 058

REACTIONS (2)
  - Acute kidney injury [Recovering/Resolving]
  - Drug abuse [Unknown]
